FAERS Safety Report 6188350-2 (Version None)
Quarter: 2009Q2

REPORT INFORMATION
  Report Type: 
  Country: None (occurrence: None)
  Receive Date: 20090513
  Receipt Date: 20090504
  Transmission Date: 20091009
  Serious: Yes (Other)
  Sender: FDA-Public Use
  Company Number: FI-AVENTIS-200912456EU

PATIENT
  Age: 67 Year
  Sex: Female
  Weight: 82 kg

DRUGS (15)
  1. ENOXAPARIN SODIUM [Suspect]
     Indication: THROMBOSIS PROPHYLAXIS
     Route: 058
     Dates: start: 20081104, end: 20081111
  2. DILTIAZEM HYDROCHLORIDE [Concomitant]
     Dates: start: 19980101
  3. ATACAND [Concomitant]
     Dates: start: 20060330
  4. ARTHRYL                            /00943602/ [Concomitant]
     Dates: start: 19980101
  5. METFORMIN HCL [Concomitant]
     Dates: start: 19980101
  6. IMOVANE [Concomitant]
     Dates: start: 20080201
  7. HYDROXYZINE [Concomitant]
     Dates: start: 20081105, end: 20081105
  8. ZINACEF                            /00454601/ [Concomitant]
     Dates: start: 20081105, end: 20081105
  9. STESOLID NOVUM                     /00017001/ [Concomitant]
     Dates: start: 20081105, end: 20081105
  10. GELOFUSINE                         /00523001/ [Concomitant]
     Dates: start: 20081105, end: 20081105
  11. ACETAMINOPHEN [Concomitant]
     Dates: start: 20081105, end: 20081106
  12. PARACETAMOL [Concomitant]
     Dates: start: 20081105
  13. OXYNORM [Concomitant]
     Dates: start: 20081105, end: 20081109
  14. OXYCONTIN [Concomitant]
     Dates: start: 20081105, end: 20081111
  15. BUCAIN [Concomitant]
     Dates: start: 20081105, end: 20081105

REACTIONS (1)
  - LIVER FUNCTION TEST ABNORMAL [None]
